FAERS Safety Report 5136917-2 (Version None)
Quarter: 2006Q4

REPORT INFORMATION
  Report Type: 
  Country: None (occurrence: None)
  Receive Date: 20061023
  Receipt Date: 20060926
  Transmission Date: 20070319
  Serious: Yes (Life-Threatening, Hospitalization, Other)
  Sender: FDA-Public Use
  Company Number: 2006117120

PATIENT
  Age: 76 Year
  Sex: Female

DRUGS (10)
  1. NEURONTIN [Suspect]
     Indication: PAIN
     Dosage: 600 MG (600 MG, 1 IN 1 D)
     Dates: start: 20060801, end: 20060904
  2. LYRICA [Suspect]
     Indication: PAIN
     Dosage: 300 MG (150 MG, 2 IN 1 D), ORAL
     Route: 048
     Dates: start: 20060904, end: 20060906
  3. HIDROXIL B12 B6 B1              (HYDROXOCOBALAMIN, PYRIDOXINE HYDROCHL [Concomitant]
  4. MYAMBUTOL [Concomitant]
  5. LEVOFLOXACIN [Concomitant]
  6. ISONIAZID [Concomitant]
  7. CUSIMOLOL                   (TIMOLOL MALEATE) [Concomitant]
  8. LEXAPRO [Concomitant]
  9. DURAGESIC-100 [Concomitant]
  10. MAYGACE                  (MEGESTROL ACETATE) [Concomitant]

REACTIONS (21)
  - ANURIA [None]
  - BLOOD PRESSURE SYSTOLIC DECREASED [None]
  - CARDIAC FAILURE [None]
  - CONTRACEPTIVE DIAPHRAGM [None]
  - CREPITATIONS [None]
  - CYANOSIS [None]
  - DIAPHRAGMATIC DISORDER [None]
  - EFFUSION [None]
  - ENTEROBACTER INFECTION [None]
  - FUNGUS SPUTUM TEST POSITIVE [None]
  - GENERAL PHYSICAL CONDITION ABNORMAL [None]
  - HEART RATE INCREASED [None]
  - OXYGEN SATURATION DECREASED [None]
  - RESPIRATORY FAILURE [None]
  - SOMNOLENCE [None]
  - SPEECH DISORDER [None]
  - TACHYCARDIA [None]
  - TREMOR [None]
  - URINARY TRACT INFECTION FUNGAL [None]
  - VOMITING [None]
  - WHEEZING [None]
